FAERS Safety Report 11350478 (Version 1)
Quarter: 2015Q3

REPORT INFORMATION
  Report Type: Spontaneous
  Country: BR (occurrence: BR)
  Receive Date: 20150807
  Receipt Date: 20150807
  Transmission Date: 20151125
  Serious: Yes (Other)
  Sender: FDA-Public Use
  Company Number: BR-PFIZER INC-2015256590

PATIENT
  Age: 57 Year
  Sex: Male
  Weight: 92 kg

DRUGS (2)
  1. XALATAN [Suspect]
     Active Substance: LATANOPROST
     Indication: INTRAOCULAR PRESSURE INCREASED
     Dosage: 1 DROP IN BOTH SIGHTS 1X/DAY
     Route: 047
     Dates: start: 20040323
  2. XALATAN [Suspect]
     Active Substance: LATANOPROST
     Dosage: 1 DROP IN BOTH SIGHTS 1X/DAY
     Route: 047
     Dates: start: 2013

REACTIONS (1)
  - Optic nerve disorder [Not Recovered/Not Resolved]
